FAERS Safety Report 7934422-9 (Version None)
Quarter: 2011Q4

REPORT INFORMATION
  Report Type: 
  Country: None (occurrence: None)
  Receive Date: 20111122
  Receipt Date: 20111117
  Transmission Date: 20120403
  Serious: Yes (Death)
  Sender: FDA-Public Use
  Company Number: US-VIIV HEALTHCARE LIMITED-A0953745A

PATIENT
  Age: 59 Year
  Sex: Male

DRUGS (1)
  1. EPZICOM [Suspect]
     Indication: PRODUCT USED FOR UNKNOWN INDICATION
     Route: 048
     Dates: start: 20110629, end: 20111115

REACTIONS (1)
  - DEATH [None]
